FAERS Safety Report 15997466 (Version 1)
Quarter: 2019Q1

REPORT INFORMATION
  Report Type: Spontaneous
  Country: VE (occurrence: VE)
  Receive Date: 20190222
  Receipt Date: 20190222
  Transmission Date: 20190418
  Serious: Yes (Other)
  Sender: FDA-Public Use
  Company Number: VE-BAUSCH-BL-2019-005481

PATIENT
  Age: 59 Year
  Sex: Female

DRUGS (1)
  1. DICLOFENAC [Suspect]
     Active Substance: DICLOFENAC
     Indication: PRODUCT USED FOR UNKNOWN INDICATION
     Route: 065

REACTIONS (5)
  - Hypersensitivity [Unknown]
  - Aspirin-exacerbated respiratory disease [Unknown]
  - Rhinitis [Unknown]
  - Condition aggravated [Unknown]
  - Asthma [Unknown]
